FAERS Safety Report 8057494-2 (Version None)
Quarter: 2012Q1

REPORT INFORMATION
  Report Type: 
  Country: None (occurrence: None)
  Receive Date: 20120119
  Receipt Date: 20120113
  Transmission Date: 20120608
  Serious: Yes (Other)
  Sender: FDA-Public Use
  Company Number: US-ASTRAZENECA-2011SE04663

PATIENT
  Age: 70 Year
  Sex: Female

DRUGS (19)
  1. SEROQUEL [Suspect]
     Route: 048
  2. METOPROLOL TARTRATE [Concomitant]
     Indication: HYPERTENSION
     Dosage: 50 MG IN THE MORNING AND AT BEDTIME
     Route: 048
     Dates: start: 20080901
  3. SEROQUEL [Suspect]
     Indication: SLEEP DISORDER
     Route: 048
     Dates: start: 20030101
  4. SEROQUEL [Suspect]
     Route: 048
  5. SIMVASTATIN [Concomitant]
  6. LEVOTHYROXINE SODIUM [Concomitant]
  7. SEROQUEL [Suspect]
     Route: 048
  8. METOPROLOL TARTRATE [Concomitant]
     Dosage: 50 MG IN THE MORNING
     Route: 048
  9. PLAVIX [Concomitant]
  10. SEROQUEL [Suspect]
     Route: 048
  11. METOPROLOL TARTRATE [Concomitant]
     Dosage: 100 ER
  12. SEROQUEL [Suspect]
     Indication: INSOMNIA
     Route: 048
     Dates: start: 20030101
  13. SEROQUEL [Suspect]
     Indication: POST-TRAUMATIC STRESS DISORDER
     Route: 048
     Dates: start: 20030101
  14. SEROQUEL [Suspect]
     Route: 048
  15. SEROQUEL [Suspect]
     Route: 048
     Dates: start: 20030101
  16. SEROQUEL [Suspect]
     Route: 048
     Dates: start: 20030101
  17. SEROQUEL [Suspect]
     Route: 048
     Dates: start: 20030101
  18. SEROQUEL [Suspect]
     Route: 048
  19. LORAZEPAM [Concomitant]

REACTIONS (9)
  - PSYCHOLOGICAL TRAUMA [None]
  - OFF LABEL USE [None]
  - THERAPEUTIC RESPONSE UNEXPECTED [None]
  - INSOMNIA [None]
  - HALLUCINATION [None]
  - SCHIZOPHRENIA [None]
  - VICTIM OF SEXUAL ABUSE [None]
  - DRUG INEFFECTIVE FOR UNAPPROVED INDICATION [None]
  - DELUSIONAL PERCEPTION [None]
